FAERS Safety Report 9264994 (Version 1)
Quarter: 2013Q2

REPORT INFORMATION
  Report Type: Spontaneous
  Country: US (occurrence: None)
  Receive Date: 20130425
  Receipt Date: 20130425
  Transmission Date: 20140414
  Serious: Yes (Hospitalization, Disabling)
  Sender: FDA-Public Use
  Company Number: IPC201304-000142

PATIENT
  Age: 36 Year
  Sex: Male

DRUGS (5)
  1. METOPROLOL TARTRATE [Suspect]
     Dosage: 10 TO 12 TABLETS
  2. MECLIZINE [Suspect]
     Dosage: 12 TO 15 TABLETS
  3. PREGABALIN [Suspect]
     Dosage: 5 TO 8 CAPSULES
  4. PROMETHAZINE [Suspect]
     Dosage: 4 TO 6 TABLETS
  5. METHAMPHETAMINE [Suspect]

REACTIONS (27)
  - Suicide attempt [None]
  - Intentional overdose [None]
  - Unresponsive to stimuli [None]
  - Hypotension [None]
  - Bradycardia [None]
  - Cardiac arrest [None]
  - Lethargy [None]
  - Dysarthria [None]
  - Mental status changes [None]
  - Sedation [None]
  - Blood pressure fluctuation [None]
  - Respiratory failure [None]
  - Renal failure [None]
  - Hepatic ischaemia [None]
  - Adrenal insufficiency [None]
  - Sepsis [None]
  - Blindness [None]
  - Brain injury [None]
  - Toxicity to various agents [None]
  - Insomnia [None]
  - Drug abuse [None]
  - Alcohol use [None]
  - Pupil fixed [None]
  - Pulse pressure decreased [None]
  - Metabolic disorder [None]
  - Refusal of treatment by patient [None]
  - Haemodialysis [None]
